FAERS Safety Report 9385725 (Version 1)
Quarter: 2013Q3

REPORT INFORMATION
  Report Type: Other
  Country: AT (occurrence: AT)
  Receive Date: 20130705
  Receipt Date: 20130705
  Transmission Date: 20140515
  Serious: Yes (Death)
  Sender: FDA-Public Use
  Company Number: AT-BRISTOL-MYERS SQUIBB COMPANY-19077924

PATIENT
  Sex: 0

DRUGS (4)
  1. ETOPOSIDE [Suspect]
     Route: 064
  2. IFOSFAMIDE [Suspect]
     Route: 064
  3. DOXORUBICIN [Suspect]
     Dosage: ON DAYS 1 TO 3
  4. VINCRISTINE [Suspect]
     Dosage: ON DAY1
     Route: 064

REACTIONS (1)
  - Foetal death [Fatal]
